FAERS Safety Report 4490620-0 (Version None)
Quarter: 2004Q4

REPORT INFORMATION
  Report Type: 
  Country: None (occurrence: None)
  Receive Date: 20041027
  Receipt Date: 20041014
  Transmission Date: 20050328
  Serious: Yes (Other)
  Sender: FDA-Public Use
  Company Number: HQWYE545205OCT04

PATIENT
  Age: 78 Year
  Sex: Female

DRUGS (5)
  1. OSTELUC (ETODOLAC, CAPSULE) [Suspect]
     Indication: LOCALISED OSTEOARTHRITIS
     Route: 048
     Dates: start: 20040820, end: 20040827
  2. ALFACALCIDOL (ALFACALCIDOL) [Suspect]
     Indication: LOCALISED OSTEOARTHRITIS
     Dosage: 1 UG 1 X PER 1 DAY
     Route: 048
     Dates: start: 20030415, end: 20040827
  3. FOSAMAX [Suspect]
     Indication: LOCALISED OSTEOARTHRITIS
     Dosage: 5 MG 1X PER 1 DAY
     Route: 048
     Dates: start: 20030201, end: 20040827
  4. HYALURONIDASE [Suspect]
     Indication: LOCALISED OSTEOARTHRITIS
     Dosage: INJECTION DOSE NOT SPECIFIED
     Dates: start: 20040820, end: 20040827
  5. MUCOSTA (REBAMIPIDE) [Concomitant]

REACTIONS (3)
  - BODY TEMPERATURE INCREASED [None]
  - RASH [None]
  - STOMATITIS [None]
